FAERS Safety Report 5074753-6 (Version None)
Quarter: 2006Q3

REPORT INFORMATION
  Report Type: 
  Country: None (occurrence: None)
  Receive Date: 20060807
  Receipt Date: 20060727
  Transmission Date: 20061208
  Serious: Yes (Other)
  Sender: FDA-Public Use
  Company Number: USA-2006-0024716

PATIENT
  Age: 4 Year
  Sex: Male

DRUGS (2)
  1. CEFDITOREN PIVOXIL (SIMILAR  TO NDA 21-222) (CEFDITOREN PIVOXIL)OTHER [Suspect]
     Indication: DRUG USE FOR UNKNOWN INDICATION
     Dosage: 150 MG DAILY ORAL
     Route: 048
     Dates: start: 20060620, end: 20060622
  2. POLARAMINE [Concomitant]

REACTIONS (1)
  - HYPOGLYCAEMIA [None]
